FAERS Safety Report 14141834 (Version 1)
Quarter: 2017Q4

REPORT INFORMATION
  Report Type: Spontaneous
  Country: JP (occurrence: JP)
  Receive Date: 20171030
  Receipt Date: 20171030
  Transmission Date: 20180321
  Serious: Yes (Death, Life-Threatening, Hospitalization, Other)
  Sender: FDA-Public Use
  Company Number: JP-ROCHE-1946413

PATIENT
  Age: 44 Year
  Sex: Female

DRUGS (3)
  1. AVASTIN [Suspect]
     Active Substance: BEVACIZUMAB
     Indication: CERVIX CARCINOMA
     Route: 041
     Dates: start: 2017, end: 2017
  2. CISPLATIN. [Suspect]
     Active Substance: CISPLATIN
     Indication: CERVIX CARCINOMA
     Dosage: DOSAGE IS UNCERTAIN.
     Route: 041
     Dates: start: 20170310, end: 20170331
  3. PACLITAXEL. [Suspect]
     Active Substance: PACLITAXEL
     Indication: CERVIX CARCINOMA
     Dosage: DOSAGE IS UNCERTAIN.
     Route: 041
     Dates: start: 20170309, end: 20170330

REACTIONS (7)
  - White blood cell count decreased [Recovering/Resolving]
  - Cervix disorder [Unknown]
  - Neutrophil count decreased [Recovering/Resolving]
  - Cervix haemorrhage uterine [Unknown]
  - Anaemia [Recovering/Resolving]
  - Female genital tract fistula [Not Recovered/Not Resolved]
  - Cervix carcinoma [Fatal]

NARRATIVE: CASE EVENT DATE: 20170318
